FAERS Safety Report 20994985 (Version 1)
Quarter: 2022Q2

REPORT INFORMATION
  Report Type: Report from Study
  Country: CO (occurrence: CO)
  Receive Date: 20220622
  Receipt Date: 20220622
  Transmission Date: 20220721
  Serious: Yes (Hospitalization)
  Sender: FDA-Public Use
  Company Number: CO-JNJFOC-20220639727

PATIENT
  Age: 45 Year
  Sex: Male
  Weight: 60 kg

DRUGS (9)
  1. INVEGA TRINZA [Suspect]
     Active Substance: PALIPERIDONE PALMITATE
     Indication: Schizophrenia
     Route: 030
     Dates: start: 20191213
  2. INVEGA TRINZA [Suspect]
     Active Substance: PALIPERIDONE PALMITATE
  3. INVEGA TRINZA [Suspect]
     Active Substance: PALIPERIDONE PALMITATE
  4. KEPPRA [Concomitant]
     Active Substance: LEVETIRACETAM
  5. CLONAZEPAM [Concomitant]
     Active Substance: CLONAZEPAM
  6. QUETIAPINE [Concomitant]
     Active Substance: QUETIAPINE
  7. QUETIAPINE [Concomitant]
     Active Substance: QUETIAPINE
  8. OLANZAPINE [Concomitant]
     Active Substance: OLANZAPINE
  9. VALPROIC ACID [Concomitant]
     Active Substance: VALPROIC ACID

REACTIONS (1)
  - Pneumonia [Recovering/Resolving]

NARRATIVE: CASE EVENT DATE: 20220614
